FAERS Safety Report 10163022 (Version 10)
Quarter: 2015Q3

REPORT INFORMATION
  Report Type: Spontaneous
  Country: US (occurrence: US)
  Receive Date: 20140509
  Receipt Date: 20150925
  Transmission Date: 20151125
  Serious: Yes (Hospitalization)
  Sender: FDA-Public Use
  Company Number: US-PFIZER INC-2014122989

PATIENT
  Age: 71 Year
  Sex: Female
  Weight: 61.22 kg

DRUGS (16)
  1. SUTENT [Suspect]
     Active Substance: SUNITINIB MALATE
     Indication: GASTROINTESTINAL STROMAL TUMOUR
     Dosage: 25 MG, CYCLIC (DAILY FOR A WEEK AND THEN OFF THERAPY FOR A WEEK)
     Dates: start: 20110930
  2. FLONASE [Concomitant]
     Active Substance: FLUTICASONE PROPIONATE
     Dosage: UNK, AS NEEDED (OCCASIONALLY)
  3. SIMVASTATIN. [Concomitant]
     Active Substance: SIMVASTATIN
     Dosage: UNK
  4. DEXILANT [Concomitant]
     Active Substance: DEXLANSOPRAZOLE
     Indication: GASTROOESOPHAGEAL REFLUX DISEASE
     Dosage: 60 MG, DAILY
     Dates: start: 20120917
  5. FLONASE [Concomitant]
     Active Substance: FLUTICASONE PROPIONATE
     Indication: NASAL DISCOMFORT
     Dosage: UNK, AS NEEDED (SPRAY FOR RIGHT NOSTRIL)
  6. TOPROL XL [Concomitant]
     Active Substance: METOPROLOL SUCCINATE
     Dosage: UNK
  7. ESTRACE [Concomitant]
     Active Substance: ESTRADIOL
     Dosage: UNK 3X/WEEK
  8. MAGIC SWIZZLE [Concomitant]
     Dosage: UNK
     Dates: end: 2011
  9. SUTENT [Suspect]
     Active Substance: SUNITINIB MALATE
     Dosage: 25 MG, DAILY
     Dates: start: 20110930, end: 20150413
  10. METOPROLOL [Concomitant]
     Active Substance: METOPROLOL
     Indication: BLOOD PRESSURE ABNORMAL
     Dosage: UNK
  11. SUTENT [Suspect]
     Active Substance: SUNITINIB MALATE
     Dosage: 25 MG, CYCLIC (25MG/ONCE A DAY ON 7 OFF 7 DAYS)
     Dates: end: 20150413
  12. ZOLPIDEM [Concomitant]
     Active Substance: ZOLPIDEM\ZOLPIDEM TARTRATE
     Indication: SLEEP DISORDER
     Dosage: 5 MG, UNK (1/2 OF 10 MG TAB)
  13. LORAZEPAM. [Concomitant]
     Active Substance: LORAZEPAM
     Dosage: 0.5 MG, AS NEEDED
  14. TRIAMTERENE. [Concomitant]
     Active Substance: TRIAMTERENE
     Dosage: UNK
  15. ESTRACE [Concomitant]
     Active Substance: ESTRADIOL
     Dosage: UNK, 3X/DAY
     Route: 061
  16. IMODIUM [Concomitant]
     Active Substance: LOPERAMIDE HYDROCHLORIDE
     Dosage: UNK, AS NEEDED
     Dates: end: 2015

REACTIONS (27)
  - Gastrooesophageal reflux disease [Recovered/Resolved]
  - Nasal oedema [Recovered/Resolved]
  - Visual impairment [Recovered/Resolved]
  - Fluid retention [Not Recovered/Not Resolved]
  - Dysgeusia [Recovered/Resolved]
  - Diarrhoea [Recovered/Resolved]
  - Stomatitis [Recovered/Resolved]
  - Vomiting [Recovered/Resolved]
  - Urinary tract infection [Recovered/Resolved]
  - Oral pain [Recovered/Resolved]
  - Fungal infection [Unknown]
  - Burning sensation [Recovered/Resolved]
  - Back pain [Unknown]
  - Disease recurrence [Unknown]
  - Crying [Recovered/Resolved]
  - Eye swelling [Not Recovered/Not Resolved]
  - Swelling face [Recovered/Resolved]
  - Pneumothorax [Not Recovered/Not Resolved]
  - Peripheral swelling [Not Recovered/Not Resolved]
  - Breath odour [Recovered/Resolved]
  - Contusion [Not Recovered/Not Resolved]
  - Chest pain [Not Recovered/Not Resolved]
  - Depression [Recovered/Resolved]
  - Skin discolouration [Not Recovered/Not Resolved]
  - Gastrointestinal stromal tumour [Unknown]
  - Arthralgia [Unknown]
  - Fatigue [Unknown]
